FAERS Safety Report 9132279 (Version 5)
Quarter: 2013Q2

REPORT INFORMATION
  Report Type: Report from Study
  Country: GB (occurrence: GB)
  Receive Date: 20130301
  Receipt Date: 20130628
  Transmission Date: 20140414
  Serious: Yes (Other)
  Sender: FDA-Public Use
  Company Number: GB-PFIZER INC-2013062571

PATIENT
  Age: 77 Year
  Sex: Male

DRUGS (11)
  1. SUNITINIB MALATE [Suspect]
     Indication: TRANSITIONAL CELL CARCINOMA
     Dosage: 25 MG, 1X/DAY
     Route: 048
     Dates: start: 20130119
  2. CISPLATIN [Concomitant]
     Indication: TRANSITIONAL CELL CARCINOMA
     Dosage: 70 MG/M2, UNK
     Route: 042
     Dates: start: 20121121
  3. GEMCITABINE HYDROCHLORIDE [Concomitant]
     Indication: TRANSITIONAL CELL CARCINOMA
     Dosage: 1000 MG/M2, UNK
     Route: 042
     Dates: start: 20121121
  4. FUROSEMIDE [Concomitant]
     Dosage: 20 MG, 1X/DAY
     Route: 048
     Dates: start: 20121221
  5. RAMIPRIL [Concomitant]
     Dosage: 1.25 MG, 1X/DAY
     Route: 048
     Dates: start: 20121221
  6. ONDANSETRON [Concomitant]
     Dosage: 16 MG, 1X/DAY
     Route: 048
     Dates: start: 20130118, end: 20130120
  7. DEXAMETHASONE [Concomitant]
     Dosage: 4 MG, 1X/DAY
     Route: 048
     Dates: start: 20130118, end: 20130120
  8. ASPIRIN [Concomitant]
     Dosage: 75 MG, 1X/DAY
     Route: 048
     Dates: start: 20040114
  9. ATENOLOL [Concomitant]
     Dosage: 50 MG, 1X/DAY
     Route: 048
     Dates: start: 19921012
  10. NIFEDIPINE [Concomitant]
     Dosage: 20 MG, 1X/DAY
     Route: 048
     Dates: start: 20021007
  11. TAMSULOSIN [Concomitant]
     Dosage: 400 MG, 1X/DAY
     Route: 048
     Dates: start: 20120628

REACTIONS (1)
  - Chest pain [Recovered/Resolved]
